FAERS Safety Report 19906649 (Version 3)
Quarter: 2023Q2

REPORT INFORMATION
  Report Type: Spontaneous
  Country: US (occurrence: US)
  Receive Date: 20211001
  Receipt Date: 20230407
  Transmission Date: 20230722
  Serious: Yes (Hospitalization, Other)
  Sender: FDA-Public Use
  Company Number: US-PFIZER INC-2020447662

PATIENT
  Age: 72 Year
  Sex: Female

DRUGS (2)
  1. XELJANZ [Suspect]
     Active Substance: TOFACITINIB CITRATE
     Indication: Rheumatoid arthritis
     Dosage: 5 MG, 2X/DAY
     Route: 048
     Dates: start: 202008
  2. XELJANZ [Suspect]
     Active Substance: TOFACITINIB CITRATE
     Dosage: 5 MG, 2X/DAY
     Route: 048
     Dates: start: 20210804

REACTIONS (11)
  - Fall [Recovering/Resolving]
  - Ankle fracture [Recovering/Resolving]
  - Hip arthroplasty [Unknown]
  - Localised infection [Unknown]
  - Cholecystectomy [Unknown]
  - Ataxia [Unknown]
  - Hypoaesthesia [Unknown]
  - Amnesia [Unknown]
  - Lymphoedema [Unknown]
  - Neuropathy peripheral [Unknown]
  - COVID-19 [Unknown]

NARRATIVE: CASE EVENT DATE: 20210720
